FAERS Safety Report 7020800-1 (Version None)
Quarter: 2010Q3

REPORT INFORMATION
  Report Type: 
  Country: None (occurrence: None)
  Receive Date: 20100929
  Receipt Date: 20100923
  Transmission Date: 20110219
  Serious: Yes (Hospitalization)
  Sender: FDA-Public Use
  Company Number: US-EISAI INC.-E2020-07551-SPO-US

PATIENT
  Sex: Male

DRUGS (2)
  1. ARICEPT [Suspect]
     Indication: PRODUCT USED FOR UNKNOWN INDICATION
     Route: 048
     Dates: end: 20100901
  2. ARICEPT [Suspect]
     Route: 048
     Dates: start: 20100901

REACTIONS (5)
  - ASTHENIA [None]
  - MIOSIS [None]
  - NAUSEA [None]
  - STUPOR [None]
  - TREMOR [None]
